FAERS Safety Report 9359924 (Version 7)
Quarter: 2013Q4

REPORT INFORMATION
  Report Type: Report from Study
  Country: FR (occurrence: FR)
  Receive Date: 20130621
  Receipt Date: 20131210
  Transmission Date: 20140711
  Serious: Yes (Hospitalization)
  Sender: FDA-Public Use
  Company Number: FR-ROCHE-1238101

PATIENT
  Age: 39 Year
  Sex: Male

DRUGS (16)
  1. PEG-INTERFERON ALFA 2A [Suspect]
     Indication: CHRONIC HEPATITIS C
     Route: 058
     Dates: start: 20130106
  2. PEG-INTERFERON ALFA 2A [Suspect]
     Route: 058
     Dates: start: 20130113, end: 20130517
  3. RIBAVIRIN [Suspect]
     Indication: CHRONIC HEPATITIS C
     Route: 048
     Dates: start: 20130106
  4. RIBAVIRIN [Suspect]
     Route: 048
     Dates: start: 20130113, end: 20130517
  5. THERALENE (FRANCE) [Concomitant]
     Indication: INSOMNIA
     Dosage: DOSE: 40 DROPS.
     Route: 048
  6. THERALENE (FRANCE) [Concomitant]
     Dosage: 20 DROPS
     Route: 048
  7. SUBUTEX [Concomitant]
     Route: 048
     Dates: start: 1999
  8. BUSPIRONE [Concomitant]
     Indication: ANXIETY
     Route: 048
     Dates: start: 201301
  9. SERESTA [Concomitant]
     Indication: ANXIETY
     Dosage: DOSE: 1 TABLET.
     Route: 048
  10. INEXIUM [Concomitant]
  11. ACUPAN [Concomitant]
     Route: 048
     Dates: start: 20130924
  12. AOTAL [Concomitant]
     Indication: ALCOHOL WITHDRAWAL SYNDROME
     Route: 048
     Dates: start: 20130102
  13. BUSPAR [Concomitant]
     Indication: ANXIETY
     Dosage: DOSE: 4 TABLETS.
     Route: 048
     Dates: start: 201309
  14. BUSPAR [Concomitant]
     Route: 048
     Dates: start: 20130113
  15. DOLIPRANE [Concomitant]
     Route: 048
     Dates: start: 20130702
  16. OLANZAPINE [Concomitant]
     Indication: PERSECUTORY DELUSION
     Route: 065
     Dates: start: 20130522

REACTIONS (5)
  - Alcoholism [Recovered/Resolved]
  - Persecutory delusion [Recovered/Resolved]
  - Depression [Recovered/Resolved]
  - Alcoholism [Recovered/Resolved]
  - Depression [Not Recovered/Not Resolved]
